FAERS Safety Report 5708478-8 (Version None)
Quarter: 2008Q2

REPORT INFORMATION
  Report Type: 
  Country: None (occurrence: None)
  Receive Date: 20080414
  Receipt Date: 20080414
  Transmission Date: 20081010
  Serious: No
  Sender: FDA-Public Use
  Company Number: None

PATIENT
  Age: 68 Year
  Sex: Male

DRUGS (1)
  1. VARDENAFIL [Suspect]
     Indication: ERECTILE DYSFUNCTION
     Dosage: 10MG ONCE PO
     Route: 048
     Dates: start: 20080401, end: 20080402

REACTIONS (3)
  - PALPITATIONS [None]
  - TACHYCARDIA [None]
  - VISUAL DISTURBANCE [None]
